FAERS Safety Report 25839754 (Version 1)
Quarter: 2025Q3

REPORT INFORMATION
  Report Type: Spontaneous
  Country: US (occurrence: US)
  Receive Date: 20250924
  Receipt Date: 20250924
  Transmission Date: 20251020
  Serious: Yes (Other)
  Sender: ORGANON
  Company Number: US-ORGANON-O2509USA001504

PATIENT
  Age: 29 Year
  Sex: Female
  Weight: 91.156 kg

DRUGS (6)
  1. GANIRELIX ACETATE [Suspect]
     Active Substance: GANIRELIX ACETATE
     Indication: In vitro fertilisation
     Dates: start: 20250917
  2. GANIRELIX ACETATE [Suspect]
     Active Substance: GANIRELIX ACETATE
     Indication: In vitro fertilisation
     Dates: start: 20250916
  3. GANIRELIX ACETATE [Suspect]
     Active Substance: GANIRELIX ACETATE
     Indication: In vitro fertilisation
     Dates: start: 20250917
  4. FOLLISTIM [Concomitant]
     Active Substance: FOLLITROPIN
  5. PRENATAL [ASCORBIC ACID;BETACAROTENE;BIOTIN;CALCIUM CARBONATE;CALCIUM [Concomitant]
  6. WELLBUTRIN [Concomitant]
     Active Substance: BUPROPION HYDROCHLORIDE

REACTIONS (9)
  - Blindness [Recovered/Resolved]
  - Deafness [Recovered/Resolved]
  - Loss of consciousness [Recovered/Resolved]
  - Injection site pain [Recovered/Resolved]
  - Device adhesion issue [Unknown]
  - Needle issue [Unknown]
  - Poor quality device used [Unknown]
  - Needle issue [Unknown]
  - Wrong technique in product usage process [Unknown]

NARRATIVE: CASE EVENT DATE: 20250916
